FAERS Safety Report 12650813 (Version 1)
Quarter: 2016Q3

REPORT INFORMATION
  Report Type: Spontaneous
  Country: US (occurrence: US)
  Receive Date: 20160815
  Receipt Date: 20160815
  Transmission Date: 20161109
  Serious: No
  Sender: FDA-Public Use
  Company Number: US-JAZZ-2016-US-004874

PATIENT
  Age: 12 Year
  Sex: Male
  Weight: 48.73 kg

DRUGS (4)
  1. XYREM [Suspect]
     Active Substance: SODIUM OXYBATE
     Indication: NARCOLEPSY
     Dosage: UNKNOWN DOSE (UNDER CLINICAL TRIAL)
     Route: 048
     Dates: start: 20160125, end: 201602
  2. ZOFRAN [Concomitant]
     Active Substance: ONDANSETRON HYDROCHLORIDE
     Dosage: UNK
  3. CELEBREX [Concomitant]
     Active Substance: CELECOXIB
     Indication: CONNECTIVE TISSUE DISORDER
     Dosage: UNK
  4. XYREM [Suspect]
     Active Substance: SODIUM OXYBATE
     Indication: CATAPLEXY
     Dosage: 3.25 G, BID
     Route: 048
     Dates: start: 20160226

REACTIONS (1)
  - Nausea [Recovered/Resolved]

NARRATIVE: CASE EVENT DATE: 20160226
